FAERS Safety Report 9985643 (Version 1)
Quarter: 2014Q1

REPORT INFORMATION
  Report Type: Spontaneous
  Country: US (occurrence: US)
  Receive Date: 20140307
  Receipt Date: 20140307
  Transmission Date: 20141002
  Serious: Yes (Other)
  Sender: FDA-Public Use
  Company Number: US-JNJFOC-20140301295

PATIENT
  Age: 68 Year
  Sex: Female

DRUGS (3)
  1. INVOKANA [Suspect]
     Indication: DIABETES MELLITUS
     Route: 048
  2. PAXIL [Concomitant]
  3. ATIVAN [Concomitant]

REACTIONS (2)
  - Swollen tongue [Unknown]
  - Rash [Unknown]
